FAERS Safety Report 18362089 (Version 2)
Quarter: 2020Q4

REPORT INFORMATION
  Report Type: Spontaneous
  Country: US (occurrence: US)
  Receive Date: 20201008
  Receipt Date: 20201015
  Transmission Date: 20210114
  Serious: Yes (Hospitalization, Other)
  Sender: FDA-Public Use
  Company Number: US-PFIZER INC-2020384775

PATIENT
  Age: 9 Year
  Sex: Female

DRUGS (6)
  1. AMPICILLIN [Concomitant]
     Active Substance: AMPICILLIN
     Dosage: UNK
  2. METHICILLIN [Concomitant]
     Active Substance: METHICILLIN
     Dosage: UNK
  3. TERPIN HYDRATE AND CODEINE [Concomitant]
     Active Substance: CODEINE\TERPIN HYDRATE
     Dosage: UNK
  4. DILANTIN [Suspect]
     Active Substance: PHENYTOIN
     Indication: PARTIAL SEIZURES
     Dosage: UNK
  5. PHENOBARBITAL. [Concomitant]
     Active Substance: PHENOBARBITAL
     Indication: PARTIAL SEIZURES
     Dosage: UNK
  6. OXYTETRACYCLINE [Concomitant]
     Active Substance: OXYTETRACYCLINE
     Indication: PHARYNGITIS
     Dosage: UNK

REACTIONS (13)
  - Haemolytic anaemia [Unknown]
  - Arthralgia [Unknown]
  - Nephritis [Unknown]
  - Drug hypersensitivity [Unknown]
  - Hepatitis [Unknown]
  - Malaise [Unknown]
  - Myalgia [Unknown]
  - Eosinophilia [Unknown]
  - Dermatitis exfoliative [Unknown]
  - Splenomegaly [Unknown]
  - Pyrexia [Unknown]
  - Lymphadenopathy [Unknown]
  - Pharyngitis [Unknown]
